FAERS Safety Report 6659954-5 (Version None)
Quarter: 2010Q1

REPORT INFORMATION
  Report Type: 
  Country: None (occurrence: None)
  Receive Date: 20100330
  Receipt Date: 20100326
  Transmission Date: 20100710
  Serious: Yes (Death)
  Sender: FDA-Public Use
  Company Number: GB-GILEAD-2010-0027032

PATIENT
  Age: 50 Year
  Sex: Male

DRUGS (9)
  1. TRUVADA [Suspect]
     Indication: HIV INFECTION
     Dates: start: 20090101, end: 20090601
  2. KIVEXA [Suspect]
     Indication: HIV INFECTION
     Route: 048
     Dates: start: 20060701
  3. EFAVIRENZ [Suspect]
     Indication: HIV INFECTION
     Dates: start: 20060701
  4. ATENOLOL [Concomitant]
  5. ENALAPRIL MALEATE [Concomitant]
  6. FENOFIBRATE [Concomitant]
  7. INTERFERON [Concomitant]
  8. ROSUVASTATIN [Concomitant]
  9. VENLAFAXINE [Concomitant]

REACTIONS (6)
  - BLOOD ELECTROLYTES ABNORMAL [None]
  - DYSENTERY [None]
  - RENAL FAILURE ACUTE [None]
  - RENAL IMPAIRMENT [None]
  - SEPSIS [None]
  - SHIGELLA INFECTION [None]
